FAERS Safety Report 4379913-5 (Version None)
Quarter: 2004Q2

REPORT INFORMATION
  Report Type: 
  Country: None (occurrence: None)
  Receive Date: 20040615
  Receipt Date: 20040526
  Transmission Date: 20050107
  Serious: Yes (Other)
  Sender: FDA-Public Use
  Company Number: 2004-DE-03076GD

PATIENT
  Age: 55 Year
  Sex: Male

DRUGS (8)
  1. MORPHINE [Suspect]
     Indication: PAIN
     Dosage: 4 G/H WITH INTERMITTENT BOLUS DOSES
  2. FENTANYL [Suspect]
     Indication: PAIN
     Dosage: 175 MCG/H (NR), TD
     Route: 062
  3. FLUOXETINE [Suspect]
     Dosage: 80 MG (NR), NR
  4. TRAZODONE (TRAZODONE HYDROCHLORIDE) [Concomitant]
  5. GABAPENTIN [Concomitant]
  6. CEPHALEXIN [Concomitant]
  7. LEVOFLOXACIN [Concomitant]
  8. LAXATIVE REGIMEN (LAXATIVES) [Concomitant]

REACTIONS (6)
  - CONFUSIONAL STATE [None]
  - DECREASED ACTIVITY [None]
  - DELIRIUM [None]
  - ENCEPHALOPATHY [None]
  - MYOCLONUS [None]
  - SEDATION [None]
